FAERS Safety Report 7307210-4 (Version None)
Quarter: 2011Q1

REPORT INFORMATION
  Report Type: 
  Country: None (occurrence: None)
  Receive Date: 20110223
  Receipt Date: 20110215
  Transmission Date: 20110831
  Serious: Yes (Hospitalization, Other)
  Sender: FDA-Public Use
  Company Number: US-PFIZER INC-2010084606

PATIENT
  Age: 71 Year
  Sex: Male
  Weight: 89.342 kg

DRUGS (5)
  1. ENALAPRIL MALEATE [Concomitant]
  2. VIAGRA [Suspect]
     Indication: ERECTILE DYSFUNCTION
     Dosage: UNK
  3. LEVOTHYROXINE [Concomitant]
  4. NORVASC [Concomitant]
  5. LIPITOR [Concomitant]

REACTIONS (1)
  - TRANSIENT GLOBAL AMNESIA [None]
